FAERS Safety Report 18208082 (Version 1)
Quarter: 2020Q3

REPORT INFORMATION
  Report Type: Spontaneous
  Country: US (occurrence: US)
  Receive Date: 20200828
  Receipt Date: 20200828
  Transmission Date: 20201103
  Serious: Yes (Life-Threatening, Hospitalization, Other)
  Sender: FDA-Public Use
  Company Number: US-MICRO LABS LIMITED-ML2020-02477

PATIENT
  Age: 44 Year
  Sex: Female

DRUGS (2)
  1. VERAPAMIL HYDROCHLORIDE. [Suspect]
     Active Substance: VERAPAMIL HYDROCHLORIDE
     Dosage: 60 TABLETS OF 125 MG EXTENDED?RELEASE VERAPAMIL
  2. CLONAZEPAM. [Suspect]
     Active Substance: CLONAZEPAM
     Dosage: 90 TABLETS OF 0.25 MG CLONAZEPAM

REACTIONS (10)
  - Mental status changes [Unknown]
  - Mitral valve incompetence [Unknown]
  - Acute respiratory distress syndrome [Recovered/Resolved]
  - Aspartate aminotransferase increased [Unknown]
  - Suicide attempt [Recovering/Resolving]
  - Bradycardia [Recovered/Resolved]
  - Intentional overdose [Recovering/Resolving]
  - Dysarthria [Unknown]
  - Toxicity to various agents [Recovering/Resolving]
  - Hypotension [Recovered/Resolved]
